FAERS Safety Report 9027159 (Version 1)
Quarter: 2013Q1

REPORT INFORMATION
  Report Type: Spontaneous
  Country: US (occurrence: US)
  Receive Date: 20130123
  Receipt Date: 20130123
  Transmission Date: 20140127
  Serious: Yes (Hospitalization)
  Sender: FDA-Public Use
  Company Number: US-GLAXOSMITHKLINE-A1008552A

PATIENT
  Age: 70 Year
  Sex: Female

DRUGS (2)
  1. ADVAIR [Suspect]
     Indication: DYSPNOEA
     Dosage: 1PUFF AS REQUIRED
     Route: 055
  2. PROAIR HFA [Concomitant]
     Route: 055

REACTIONS (5)
  - Apparent death [Recovering/Resolving]
  - Bronchitis [Recovering/Resolving]
  - Feeling abnormal [Recovering/Resolving]
  - Oxygen saturation decreased [Recovering/Resolving]
  - Drug administration error [Recovering/Resolving]
